FAERS Safety Report 6203681-5 (Version None)
Quarter: 2009Q2

REPORT INFORMATION
  Report Type: 
  Country: None (occurrence: None)
  Receive Date: 20090526
  Receipt Date: 20090526
  Transmission Date: 20091009
  Serious: Yes (Hospitalization)
  Sender: FDA-Public Use
  Company Number: None

PATIENT
  Sex: Female
  Weight: 63.5036 kg

DRUGS (3)
  1. MIRALAX [Suspect]
     Indication: COLONOSCOPY
     Dosage: 238G BOTTLE ONCE PO ONCE ONLY
     Route: 048
  2. PLAVIX [Concomitant]
  3. TAMOXIFEN CITRATE [Concomitant]

REACTIONS (3)
  - DISORIENTATION [None]
  - FEELING ABNORMAL [None]
  - HYPONATRAEMIA [None]
